FAERS Safety Report 9009633 (Version 1)
Quarter: 2013Q1

REPORT INFORMATION
  Report Type: Spontaneous
  Country: NZ (occurrence: NZ)
  Receive Date: 20130110
  Receipt Date: 20130110
  Transmission Date: 20140127
  Serious: Yes (Hospitalization)
  Sender: FDA-Public Use
  Company Number: NZ-PFIZER INC-2013007801

PATIENT
  Age: 37 Year
  Sex: Female

DRUGS (3)
  1. EFEXOR XR [Suspect]
     Dosage: 150 MG, UNK
  2. EFEXOR XR [Suspect]
     Dosage: 225 MG, UNK
  3. EFEXOR XR [Suspect]
     Dosage: 300 MG, UNK

REACTIONS (2)
  - Mental disorder [Unknown]
  - Feeling abnormal [Unknown]
